FAERS Safety Report 8784567 (Version 1)
Quarter: 2012Q4

REPORT INFORMATION
  Report Type: Spontaneous
  Country: US (occurrence: None)
  Receive Date: 20120907
  Receipt Date: 20120907
  Transmission Date: 20130627
  Serious: No
  Sender: FDA-Public Use
  Company Number: None

PATIENT
  Age: 69 Year
  Sex: Female

DRUGS (4)
  1. ADVAIR [Suspect]
     Indication: ASTHMA
     Dosage: 2 puffs qhs po
     Route: 048
     Dates: start: 201201
  2. ADVAIR [Suspect]
     Indication: ASTHMA
     Dosage: 2 puffs qhs po
     Route: 048
     Dates: start: 201201
  3. CRESTOR [Suspect]
     Dosage: 40 mg 1/d po
     Route: 048
     Dates: start: 201001
  4. CRESTOR [Suspect]
     Route: 048

REACTIONS (2)
  - Muscle spasms [None]
  - Muscle spasms [None]
